FAERS Safety Report 5646087-X (Version None)
Quarter: 2008Q1

REPORT INFORMATION
  Report Type: 
  Country: None (occurrence: None)
  Receive Date: 20080131
  Receipt Date: 20071213
  Transmission Date: 20080703
  Serious: Yes (Other)
  Sender: FDA-Public Use
  Company Number: 163-21880-07120818

PATIENT
  Age: 67 Year
  Sex: Male

DRUGS (13)
  1. REVLIMID [Suspect]
     Indication: MULTIPLE MYELOMA
     Dosage: 10 MG, 1 IN 1 D, ORAL
     Route: 048
     Dates: start: 20071008
  2. PREDNISONE TAB [Concomitant]
  3. ALKERAN [Concomitant]
  4. LEXAPRO [Concomitant]
  5. ASA (ACETYLSALICYLICYLIC ACID) [Concomitant]
  6. CABERGOLINE [Concomitant]
  7. AVPDART (DUTASTERIDE) [Concomitant]
  8. NEXIUM [Concomitant]
  9. VYTORIN [Concomitant]
  10. DOXAZOSIN MESYLATE [Concomitant]
  11. POTASSIUM (POTASSIUM) [Concomitant]
  12. COSOPT (COSOPT) [Concomitant]
  13. STOOL SOFTENER (DOCUSATE SODIUM) [Concomitant]

REACTIONS (1)
  - THROMBOSIS [None]
